FAERS Safety Report 7476807-3 (Version None)
Quarter: 2011Q2

REPORT INFORMATION
  Report Type: 
  Country: None (occurrence: None)
  Receive Date: 20110512
  Receipt Date: 20110503
  Transmission Date: 20111010
  Serious: Yes (Death)
  Sender: FDA-Public Use
  Company Number: NL-GENENTECH-318309

PATIENT
  Sex: Male

DRUGS (8)
  1. CIPROFLOXACIN [Concomitant]
     Indication: PROPHYLAXIS
     Dosage: 1 G, UNK
     Route: 048
     Dates: start: 20100201, end: 20100223
  2. FLUCONAZOLE [Concomitant]
     Indication: INFECTION
     Dosage: 200 MG, UNK
     Route: 048
     Dates: start: 20100225, end: 20100225
  3. RITUXAN [Suspect]
     Indication: LYMPHOMA
     Dosage: 620 MG, UNK
     Route: 042
     Dates: start: 20100213, end: 20100223
  4. CISPLATIN [Suspect]
     Indication: LYMPHOMA
     Dosage: 162 MG, UNK
     Route: 042
     Dates: start: 20100213
  5. CYTARABINE [Suspect]
     Indication: LYMPHOMA
     Dosage: 3250 MG, UNK
     Route: 042
     Dates: start: 20100214
  6. OXYCODONE HCL [Concomitant]
     Indication: PAIN
     Dosage: 5 MG, BID
     Route: 048
     Dates: start: 20100223, end: 20100225
  7. MACROGOL [Concomitant]
     Indication: PRODUCT USED FOR UNKNOWN INDICATION
     Dosage: UNK
     Route: 048
     Dates: start: 20100223, end: 20100225
  8. DEXAMETHASONE [Suspect]
     Indication: LYMPHOMA
     Dosage: 40 MG, UNK
     Route: 042
     Dates: start: 20100213

REACTIONS (2)
  - PNEUMONIA [None]
  - MALAISE [None]
